FAERS Safety Report 8037050 (Version 2)
Quarter: 2013Q2

REPORT INFORMATION
  Report Type: Spontaneous
  Country: US (occurrence: None)
  Receive Date: 20110630
  Receipt Date: 20120904
  Transmission Date: 20140414
  Serious: Yes (Hospitalization, Other)
  Sender: FDA-Public Use
  Company Number: 2011027449

PATIENT
  Age: 62 Year
  Sex: Male

DRUGS (1)
  1. CARIMUNE [Suspect]
     Indication: GUILLAIN-BARRE SYNDROME
     Dosage: (400 MG/KG QD, 0.4 G/KG/DAY FOR 5 DAYS INTRAVENOUS (NOT OTHERWISE SPECIFIED))
     Route: 042

REACTIONS (4)
  - CEREBROVASCULAR ACCIDENT [None]
  - VISION BLURRED [None]
  - HEADACHE [None]
  - EMOTIONAL DISTRESS [None]
